APPROVED DRUG PRODUCT: CHOLINE C-11
Active Ingredient: CHOLINE C-11
Strength: 4-100mCi/ML
Dosage Form/Route: INJECTABLE;INTRAVENOUS
Application: A205690 | Product #001
Applicant: UNIV TEXAS MD ANDERSON CANCER CENTER
Approved: Oct 29, 2015 | RLD: No | RS: No | Type: DISCN